FAERS Safety Report 10010493 (Version 1)
Quarter: 2014Q1

REPORT INFORMATION
  Report Type: Spontaneous
  Country: CN (occurrence: CN)
  Receive Date: 20140314
  Receipt Date: 20140314
  Transmission Date: 20141002
  Serious: Yes (Other)
  Sender: FDA-Public Use
  Company Number: CN-ABBVIE-14P-035-1212178-00

PATIENT
  Age: 18 Year
  Sex: Male

DRUGS (1)
  1. DEPAKINE CHRONO [Suspect]
     Indication: SYNCOPE
     Dosage: EXTENDED RELEASE
     Route: 048
     Dates: start: 2012

REACTIONS (3)
  - Epilepsy [Recovered/Resolved]
  - Drug dose omission [Unknown]
  - Drug level decreased [Unknown]
